FAERS Safety Report 12615166 (Version 1)
Quarter: 2016Q3

REPORT INFORMATION
  Report Type: Spontaneous
  Country: US (occurrence: US)
  Receive Date: 20160802
  Receipt Date: 20160802
  Transmission Date: 20161109
  Serious: No
  Sender: FDA-Public Use
  Company Number: US-SHIRE-US201607786

PATIENT
  Sex: Female
  Weight: 66.67 kg

DRUGS (2)
  1. LOMOTIL [Concomitant]
     Active Substance: ATROPINE SULFATE\DIPHENOXYLATE HYDROCHLORIDE
     Indication: PRODUCT USED FOR UNKNOWN INDICATION
     Dosage: UNK, 3X/DAY:TID
     Route: 065
  2. GATTEX [Suspect]
     Active Substance: TEDUGLUTIDE\WATER
     Indication: SHORT-BOWEL SYNDROME
     Dosage: 0.337 MG, 1X/DAY:QD
     Route: 058
     Dates: start: 20160530

REACTIONS (4)
  - Injection site erythema [Unknown]
  - Muscle spasms [Unknown]
  - Stoma complication [Unknown]
  - Abdominal distension [Unknown]
